FAERS Safety Report 5663717-7 (Version None)
Quarter: 2008Q1

REPORT INFORMATION
  Report Type: 
  Country: None (occurrence: None)
  Receive Date: 20080310
  Receipt Date: 20080227
  Transmission Date: 20080703
  Serious: Yes (Other)
  Sender: FDA-Public Use
  Company Number: 2008004921

PATIENT
  Age: 8 Year
  Sex: Male
  Weight: 18.1439 kg

DRUGS (3)
  1. SUDAFED 12 HOUR [Suspect]
     Indication: NASOPHARYNGITIS
     Dosage: 1 TABLET, 1 TIME, ORAL
     Route: 048
     Dates: start: 20080227, end: 20080227
  2. CHILDREN'S ADVIL [Suspect]
     Indication: NASOPHARYNGITIS
     Dosage: 3 TABLETS, ORAL
     Route: 048
     Dates: start: 20080201
  3. CONCERTA [Concomitant]

REACTIONS (1)
  - EYE SWELLING [None]
